FAERS Safety Report 7573730 (Version 5)
Quarter: 2012Q4

REPORT INFORMATION
  Report Type: 
  Country: FR (occurrence: FR)
  Receive Date: 20100906
  Receipt Date: 20121030
  Transmission Date: 20130627
  Serious: Yes (Other)
  Sender: FDA-Public Use
  Company Number: FR-BRISTOL-MYERS SQUIBB COMPANY-15265127

PATIENT
  Age: 66 Year
  Sex: Male
  Weight: 76 kg

DRUGS (3)
  1. REYATAZ CAPS [Suspect]
     Indication: HIV INFECTION
     Route: 048
     Dates: start: 20050419, end: 20100202
  2. NORVIR [Concomitant]
     Route: 048
     Dates: start: 20050419
  3. TRUVADA [Concomitant]
     Indication: HIV INFECTION
     Route: 048
     Dates: start: 20060110, end: 201109

REACTIONS (6)
  - Cholelithiasis [Not Recovered/Not Resolved]
  - Cholestasis [Unknown]
  - Pancreatitis [Unknown]
  - Cholangitis [Unknown]
  - Hepatotoxicity [Unknown]
  - Renal colic [Unknown]
